FAERS Safety Report 5934860-X (Version None)
Quarter: 2008Q4

REPORT INFORMATION
  Report Type: 
  Country: None (occurrence: None)
  Receive Date: 20081029
  Receipt Date: 20081029
  Transmission Date: 20090506
  Serious: Yes (Death, Other)
  Sender: FDA-Public Use
  Company Number: JP-ABBOTT-08P-087-0482984-00

PATIENT
  Age: 79 Year
  Sex: Male

DRUGS (6)
  1. LEUPROLIDE ACETATE [Suspect]
     Indication: PROSTATE CANCER STAGE III
     Route: 058
     Dates: start: 20060601, end: 20080202
  2. BICALUTAMIDE [Concomitant]
     Indication: PROSTATE CANCER STAGE III
     Route: 048
     Dates: start: 20060518
  3. FLUTAMIDE [Concomitant]
     Indication: PROSTATE CANCER STAGE III
     Route: 048
     Dates: start: 20070510, end: 20070815
  4. ESTRAMUSTINE PHOSPHATE SODIUM [Concomitant]
     Indication: PROSTATE CANCER STAGE III
     Route: 048
     Dates: start: 20071221, end: 20080104
  5. ETHINYL ESTRADIOL TAB [Concomitant]
     Indication: PROSTATE CANCER STAGE III
     Route: 048
     Dates: start: 20070816, end: 20071220
  6. DEXAMETHASONE [Concomitant]
     Indication: PROSTATE CANCER STAGE III
     Route: 048
     Dates: start: 20080105, end: 20080228

REACTIONS (2)
  - METASTASES TO BONE [None]
  - PROSTATE CANCER [None]
